FAERS Safety Report 10680419 (Version 1)
Quarter: 2014Q4

REPORT INFORMATION
  Report Type: Spontaneous
  Country: US (occurrence: US)
  Receive Date: 20141229
  Receipt Date: 20141229
  Transmission Date: 20150529
  Serious: No
  Sender: FDA-Public Use
  Company Number: US-SA-2014SA003149

PATIENT
  Sex: Female

DRUGS (22)
  1. TAGAMET [Concomitant]
     Active Substance: CIMETIDINE
  2. XARELTO [Concomitant]
     Active Substance: RIVAROXABAN
  3. ASPIRIN. [Concomitant]
     Active Substance: ASPIRIN
  4. DOXEPIN [Concomitant]
     Active Substance: DOXEPIN
  5. ZOFRAN [Concomitant]
     Active Substance: ONDANSETRON HYDROCHLORIDE
  6. COMPAZINE [Concomitant]
     Active Substance: PROCHLORPERAZINE MALEATE
  7. VITAMIN D3 [Concomitant]
     Active Substance: CHOLECALCIFEROL
  8. LASIX [Concomitant]
     Active Substance: FUROSEMIDE
  9. PLAVIX [Suspect]
     Active Substance: CLOPIDOGREL BISULFATE
     Indication: THROMBOSIS
     Route: 065
  10. PROTONIX [Concomitant]
     Active Substance: PANTOPRAZOLE SODIUM
  11. DULCOLAX [Concomitant]
     Active Substance: BISACODYL OR DOCUSATE SODIUM
  12. SUTENT [Concomitant]
     Active Substance: SUNITINIB MALATE
     Dates: start: 20130612
  13. PRIMIDONE. [Concomitant]
     Active Substance: PRIMIDONE
  14. ROXICODONE [Concomitant]
     Active Substance: OXYCODONE HYDROCHLORIDE
  15. LIPITOR [Concomitant]
     Active Substance: ATORVASTATIN CALCIUM
  16. METOPROLOL [Concomitant]
     Active Substance: METOPROLOL
  17. REQUIP [Concomitant]
     Active Substance: ROPINIROLE HYDROCHLORIDE
  18. SPIRIVA [Concomitant]
     Active Substance: TIOTROPIUM BROMIDE MONOHYDRATE
  19. ALBUTEROL. [Concomitant]
     Active Substance: ALBUTEROL
  20. OXYCONTIN [Concomitant]
     Active Substance: OXYCODONE HYDROCHLORIDE
  21. SALBUTAMOL [Concomitant]
     Active Substance: ALBUTEROL
  22. NYSTATIN. [Concomitant]
     Active Substance: NYSTATIN

REACTIONS (10)
  - Skin exfoliation [Unknown]
  - Nausea [Unknown]
  - Skin haemorrhage [Unknown]
  - Onychalgia [Unknown]
  - Weight decreased [Unknown]
  - Flatulence [Unknown]
  - Wound secretion [Unknown]
  - Blister [Unknown]
  - Vomiting [Unknown]
  - Diarrhoea [Unknown]
